FAERS Safety Report 21263979 (Version 1)
Quarter: 2022Q3

REPORT INFORMATION
  Report Type: Spontaneous
  Country: US (occurrence: US)
  Receive Date: 20220829
  Receipt Date: 20220829
  Transmission Date: 20221026
  Serious: No
  Sender: FDA-Public Use
  Company Number: US-GILEAD-2022-0594817

PATIENT
  Sex: Male

DRUGS (8)
  1. SOFOSBUVIR\VELPATASVIR [Suspect]
     Active Substance: SOFOSBUVIR\VELPATASVIR
     Indication: Chronic hepatitis C
     Dosage: 1 DOSAGE FORM, QD
     Route: 048
  2. METAMUCIL [Concomitant]
     Active Substance: PLANTAGO SEED
  3. FLUCONAZOLE [Concomitant]
     Active Substance: FLUCONAZOLE
  4. GABAPENTIN [Concomitant]
     Active Substance: GABAPENTIN
  5. IBUPROFEN [Concomitant]
     Active Substance: IBUPROFEN
  6. LISINOPRIL [Concomitant]
     Active Substance: LISINOPRIL
  7. OLANZAPINE [Concomitant]
     Active Substance: OLANZAPINE
  8. STIOLTO RESPIMAT [Concomitant]
     Active Substance: OLODATEROL HYDROCHLORIDE\TIOTROPIUM BROMIDE MONOHYDRATE

REACTIONS (6)
  - Fatigue [Unknown]
  - Gastric disorder [Unknown]
  - Headache [Unknown]
  - Vomiting [Recovered/Resolved]
  - Illness [Recovered/Resolved]
  - Intentional dose omission [Recovered/Resolved]
